FAERS Safety Report 4862009-3 (Version None)
Quarter: 2005Q4

REPORT INFORMATION
  Report Type: 
  Country: None (occurrence: None)
  Receive Date: 20051129
  Receipt Date: 20050926
  Transmission Date: 20060501
  Serious: Yes (Other)
  Sender: FDA-Public Use
  Company Number: WAES 0509USA03584

PATIENT
  Sex: Female

DRUGS (2)
  1. VYTORIN [Suspect]
     Dosage: PO
     Route: 048
  2. ASPIRIN [Concomitant]

REACTIONS (1)
  - URTICARIA [None]
